FAERS Safety Report 6247436-4 (Version None)
Quarter: 2009Q2

REPORT INFORMATION
  Report Type: 
  Country: None (occurrence: None)
  Receive Date: 20090626
  Receipt Date: 20090623
  Transmission Date: 20091009
  Serious: Yes (Hospitalization)
  Sender: FDA-Public Use
  Company Number: DE-ASTRAZENECA-2009PK01557

PATIENT
  Age: 65 Year
  Sex: Female

DRUGS (5)
  1. BELOC-ZOK [Suspect]
     Route: 048
  2. ZYPREXA [Interacting]
     Indication: DEPRESSIVE DELUSION
     Route: 048
     Dates: start: 20080801, end: 20090507
  3. SAROTEN [Interacting]
     Route: 048
  4. MIRTAZAPINE [Concomitant]
     Route: 048
  5. ATACAND [Concomitant]
     Route: 048

REACTIONS (2)
  - DRUG INTERACTION [None]
  - TARDIVE DYSKINESIA [None]
